FAERS Safety Report 8985214 (Version 2)
Quarter: 2013Q1

REPORT INFORMATION
  Report Type: Spontaneous
  Country: JP (occurrence: JP)
  Receive Date: 20121226
  Receipt Date: 20130114
  Transmission Date: 20140127
  Serious: Yes (Hospitalization, Other)
  Sender: FDA-Public Use
  Company Number: JP-PFIZER INC-2012326221

PATIENT
  Age: 70 Year
  Sex: Male

DRUGS (3)
  1. FOSPHENYTOIN SODIUM [Suspect]
     Indication: STATUS EPILEPTICUS
     Dosage: 375 MG, WHICH WAS DILUTED TO 100 ML OF ISOTONIC SODIUM CHLORIDE SOLUTION.
     Route: 042
     Dates: start: 20121027, end: 20121030
  2. PARIET [Concomitant]
     Indication: GASTROOESOPHAGEAL REFLUX DISEASE
     Dosage: 10 MG, 1X/DAY
     Route: 048
  3. AMLODIN [Concomitant]
     Indication: HYPERTENSION
     Dosage: 5 MG, UNK
     Route: 048

REACTIONS (1)
  - Blood creatine phosphokinase increased [Recovered/Resolved]
